FAERS Safety Report 7996741-X (Version None)
Quarter: 2011Q4

REPORT INFORMATION
  Report Type: 
  Country: None (occurrence: None)
  Receive Date: 20111221
  Receipt Date: 20110726
  Transmission Date: 20120403
  Serious: No
  Sender: FDA-Public Use
  Company Number: US-BAYER-2011-066340

PATIENT

DRUGS (2)
  1. AVELOX [Suspect]
  2. AZITHROMYCIN [Suspect]

REACTIONS (1)
  - ADVERSE DRUG REACTION [None]
